FAERS Safety Report 15147233 (Version 1)
Quarter: 2018Q3

REPORT INFORMATION
  Report Type: Spontaneous
  Country: JP (occurrence: JP)
  Receive Date: 20180716
  Receipt Date: 20180716
  Transmission Date: 20181010
  Serious: Yes (Hospitalization)
  Sender: FDA-Public Use
  Company Number: JP-BAXTER-2018BAX019537

PATIENT
  Age: 30 Year
  Sex: Male

DRUGS (2)
  1. EXTRANEAL [Suspect]
     Active Substance: CALCIUM CHLORIDE\ICODEXTRIN\MAGNESIUM CHLORIDE\SODIUM CHLORIDE\SODIUM LACTATE
     Indication: RENAL FAILURE
     Dosage: UNIT DOSE 1 (UNIT NOT REPORTED)
     Route: 033
     Dates: start: 201702, end: 20180709
  2. REGUNEAL LCA [Suspect]
     Active Substance: CALCIUM CHLORIDE\DEXTROSE MONOHYDRATE\HYDROCHLORIC ACID\MAGNESIUM CHLORIDE\SODIUM BICARBONATE\SODIUM CHLORIDE\SODIUM HYDROXIDE\SODIUM LACTATE
     Indication: RENAL FAILURE
     Dosage: UNIT DOSE 1 (UNIT NOT REPORTED)
     Route: 033
     Dates: start: 201702, end: 20180709

REACTIONS (1)
  - Pleuroperitoneal communication [Recovered/Resolved]

NARRATIVE: CASE EVENT DATE: 201804
